FAERS Safety Report 10459569 (Version 2)
Quarter: 2014Q3

REPORT INFORMATION
  Report Type: Spontaneous
  Country: DE (occurrence: DE)
  Receive Date: 20140917
  Receipt Date: 20140925
  Transmission Date: 20150326
  Serious: Yes (Other)
  Sender: FDA-Public Use
  Company Number: DE-PFIZER INC-2014250891

PATIENT
  Age: 67 Year
  Sex: Female
  Weight: 78 kg

DRUGS (5)
  1. DIOVAN [Concomitant]
     Active Substance: VALSARTAN
     Dosage: 80 MG, UNK
  2. AZULFIDINE [Suspect]
     Active Substance: SULFASALAZINE
     Dosage: 500 MG, 2X/DAY
     Route: 047
     Dates: end: 201408
  3. AZULFIDINE [Suspect]
     Active Substance: SULFASALAZINE
     Indication: RHEUMATIC DISORDER
     Dosage: 500 MG, 1X/DAY
     Dates: start: 201404
  4. PANTOZOL [Concomitant]
     Active Substance: PANTOPRAZOLE SODIUM
     Dosage: 20 MG, UNK
  5. AZULFIDINE [Suspect]
     Active Substance: SULFASALAZINE
     Dosage: 500 MG, 1X/DAY
     Route: 048
     Dates: start: 201408

REACTIONS (4)
  - Arrhythmia [Recovered/Resolved]
  - Nausea [Unknown]
  - Gastric disorder [Unknown]
  - Hypertension [Recovered/Resolved]

NARRATIVE: CASE EVENT DATE: 201408
